FAERS Safety Report 12836800 (Version 2)
Quarter: 2017Q2

REPORT INFORMATION
  Report Type: Report from Study
  Country: CL (occurrence: CL)
  Receive Date: 20161011
  Receipt Date: 20170406
  Transmission Date: 20170830
  Serious: Yes (Other)
  Sender: FDA-Public Use
  Company Number: CL-ACTELION-A-NJ2016-143673

PATIENT
  Age: 56 Year
  Sex: Female

DRUGS (11)
  1. SPIRONOLACTONE. [Concomitant]
     Active Substance: SPIRONOLACTONE
     Dosage: UNK
  2. FUROSEMIDE. [Concomitant]
     Active Substance: FUROSEMIDE
     Dosage: UNK
  3. NEBIVOLOL. [Concomitant]
     Active Substance: NEBIVOLOL
     Dosage: UNK
  4. CLONAZEPAM. [Concomitant]
     Active Substance: CLONAZEPAM
  5. NEO-SINTROM [Concomitant]
     Active Substance: ACENOCOUMAROL
     Dosage: UNK
  6. VENTAVIS [Suspect]
     Active Substance: ILOPROST
     Indication: PULMONARY HYPERTENSION
     Dosage: 1 DF, 8ID
     Route: 055
     Dates: start: 20151211
  7. BOSENTAN. [Concomitant]
     Active Substance: BOSENTAN
     Indication: PULMONARY ARTERIAL HYPERTENSION
     Dosage: UNK
  8. SILDENAFIL. [Concomitant]
     Active Substance: SILDENAFIL
  9. ESOMEPRAZOLE [Concomitant]
     Active Substance: ESOMEPRAZOLE
     Dosage: UNK
  10. DIGENIL [Concomitant]
  11. SPIRIVA [Concomitant]
     Active Substance: TIOTROPIUM BROMIDE MONOHYDRATE

REACTIONS (5)
  - Dry skin [Not Recovered/Not Resolved]
  - Skin fissures [Not Recovered/Not Resolved]
  - Tongue discolouration [Not Recovered/Not Resolved]
  - Cough [Unknown]
  - Oral mucosal erythema [Not Recovered/Not Resolved]

NARRATIVE: CASE EVENT DATE: 20160801
